FAERS Safety Report 5047982-5 (Version None)
Quarter: 2006Q3

REPORT INFORMATION
  Report Type: 
  Country: None (occurrence: None)
  Receive Date: 20060710
  Receipt Date: 20060710
  Transmission Date: 20061208
  Serious: No
  Sender: FDA-Public Use
  Company Number: None

PATIENT
  Age: 92 Year
  Sex: Female
  Weight: 72.5755 kg

DRUGS (4)
  1. BENICAR [Suspect]
     Indication: HYPERTENSION
     Dosage: 20MG  ONCE DAILY ORALLY
     Route: 048
     Dates: start: 20060101, end: 20060201
  2. DIGOXIN [Concomitant]
  3. DARVOCET [Concomitant]
  4. ACIPHEX [Concomitant]

REACTIONS (5)
  - BLOOD PRESSURE INADEQUATELY CONTROLLED [None]
  - BLOOD PRESSURE INCREASED [None]
  - DRUG THERAPY CHANGED [None]
  - HEADACHE [None]
  - VISUAL DISTURBANCE [None]
